FAERS Safety Report 20215067 (Version 1)
Quarter: 2021Q4

REPORT INFORMATION
  Report Type: Spontaneous
  Country: IL (occurrence: IL)
  Receive Date: 20211222
  Receipt Date: 20211222
  Transmission Date: 20220303
  Serious: Yes (Death, Other)
  Sender: FDA-Public Use
  Company Number: IL-ASTELLAS-2021US048709

PATIENT
  Sex: Male

DRUGS (1)
  1. GILTERITINIB [Suspect]
     Active Substance: GILTERITINIB
     Indication: Acute myeloid leukaemia
     Dosage: UNK UNK, UNKNOWN FREQ.
     Route: 065
     Dates: start: 2020, end: 202101

REACTIONS (2)
  - Acute myeloid leukaemia [Fatal]
  - Myalgia [Recovered/Resolved]

NARRATIVE: CASE EVENT DATE: 20200101
